FAERS Safety Report 24791662 (Version 1)
Quarter: 2024Q4

REPORT INFORMATION
  Report Type: Spontaneous
  Country: US (occurrence: US)
  Receive Date: 20241231
  Receipt Date: 20241231
  Transmission Date: 20250114
  Serious: Yes (Hospitalization, Other)
  Sender: BRISTOL-MYERS SQUIBB COMPANY
  Company Number: US-BRISTOL-MYERS SQUIBB COMPANY-2024-198516

PATIENT
  Age: 88 Year
  Sex: Female

DRUGS (1)
  1. POMALYST [Suspect]
     Active Substance: POMALIDOMIDE
     Indication: Plasma cell myeloma
     Dosage: TAKE 1 CAPSULE ORALLY WITH WATER WITH OR WITHOUT FOOD AT THE SAME TIME EVERY DAY FOR DAYS 1-21 EVERY
     Route: 048

REACTIONS (4)
  - Hypotension [Recovering/Resolving]
  - Localised infection [Recovering/Resolving]
  - Hypertension [Recovering/Resolving]
  - Pulmonary oedema [Recovering/Resolving]
